FAERS Safety Report 20579976 (Version 1)
Quarter: 2022Q1

REPORT INFORMATION
  Report Type: Spontaneous
  Country: US (occurrence: US)
  Receive Date: 20220310
  Receipt Date: 20220310
  Transmission Date: 20220423
  Serious: Yes (Hospitalization, Other)
  Sender: FDA-Public Use
  Company Number: US-AUROBINDO-AUR-APL-2022-007578

PATIENT
  Age: 2 Year
  Sex: Male

DRUGS (2)
  1. DEXAMETHASONE [Suspect]
     Active Substance: DEXAMETHASONE
     Indication: Acute lymphocytic leukaemia
     Dosage: UNK
     Route: 065
  2. VINCRISTINE [Suspect]
     Active Substance: VINCRISTINE
     Indication: Acute lymphocytic leukaemia
     Dosage: UNK
     Route: 065

REACTIONS (11)
  - Clostridium difficile infection [Recovering/Resolving]
  - Clostridium bacteraemia [Recovering/Resolving]
  - Neutropenic colitis [Recovering/Resolving]
  - Sepsis [Recovering/Resolving]
  - Diarrhoea haemorrhagic [Recovering/Resolving]
  - Tachycardia [Recovering/Resolving]
  - Pyrexia [Recovering/Resolving]
  - Hypotension [Recovering/Resolving]
  - Haemodynamic instability [Recovering/Resolving]
  - Coagulopathy [Recovering/Resolving]
  - Abdominal distension [Recovering/Resolving]
